FAERS Safety Report 8887500 (Version 1)
Quarter: 2012Q4

REPORT INFORMATION
  Report Type: Spontaneous
  Country: FR (occurrence: None)
  Receive Date: 20121031
  Receipt Date: 20121031
  Transmission Date: 20130627
  Serious: Yes (Death)
  Sender: FDA-Public Use
  Company Number: FR-025714

PATIENT

DRUGS (3)
  1. BUSULFAN [Suspect]
     Indication: NEUROBLASTOMA
  2. MELPHALAN (MELPHALAN) [Suspect]
     Indication: NEUROBLASTOMA
  3. THIOTEPA [Suspect]
     Dosage: 300MGM2 Per day (300 mg/m2, 1 in 1 days, unknown

REACTIONS (1)
  - Pulmonary alveolar haemorrhage [None]
